FAERS Safety Report 11266521 (Version 1)
Quarter: 2015Q3

REPORT INFORMATION
  Report Type: Report from Study
  Country: CA (occurrence: CA)
  Receive Date: 20150713
  Receipt Date: 20150713
  Transmission Date: 20151125
  Serious: Yes (Other)
  Sender: FDA-Public Use
  Company Number: CA-JNJFOC-20150706770

PATIENT
  Sex: Male

DRUGS (1)
  1. REMICADE [Suspect]
     Active Substance: INFLIXIMAB
     Indication: PRODUCT USED FOR UNKNOWN INDICATION
     Dosage: 3 INFUSIONS
     Route: 042

REACTIONS (6)
  - Hypothermia [Unknown]
  - Hypotension [Unknown]
  - Constipation [Unknown]
  - Back pain [Unknown]
  - Hypoaesthesia [Unknown]
  - Dyspnoea [Unknown]
